FAERS Safety Report 5795741-8 (Version None)
Quarter: 2008Q2

REPORT INFORMATION
  Report Type: 
  Country: None (occurrence: None)
  Receive Date: 20080630
  Receipt Date: 20080627
  Transmission Date: 20081010
  Serious: Yes (Death, Hospitalization)
  Sender: FDA-Public Use
  Company Number: US-BOEHRINGER INGELHEIM GMBH, GERMANY-2008-BP-09975RO

PATIENT
  Sex: Male

DRUGS (21)
  1. PREDNISONE [Suspect]
     Indication: COLITIS
     Dates: start: 20080407, end: 20080411
  2. PREDNISONE [Suspect]
     Dates: start: 20080411
  3. PREDNISONE [Suspect]
     Route: 048
     Dates: start: 20080419
  4. PREDNISONE [Suspect]
  5. PREDNISONE [Suspect]
     Dates: start: 20080511
  6. IPILIMUMAB [Suspect]
     Indication: MALIGNANT MELANOMA
     Route: 042
     Dates: start: 20080312, end: 20080402
  7. ATENOLOL [Concomitant]
  8. LOPID [Concomitant]
  9. LIPITOR [Concomitant]
  10. ZETIA [Concomitant]
  11. ASPIRIN [Concomitant]
  12. MULTI-VITAMIN [Concomitant]
  13. ASPIRIN [Concomitant]
  14. GEMFIBROZIL [Concomitant]
  15. PRILOSEC [Concomitant]
  16. BACTRIM [Concomitant]
  17. CALCIUM + VITAMIN D [Concomitant]
  18. FOLATE [Concomitant]
  19. THIAMINE [Concomitant]
  20. LOMOTIL [Concomitant]
  21. IMODIUM [Concomitant]

REACTIONS (9)
  - ATRIAL FLUTTER [None]
  - CARDIAC ARREST [None]
  - DEHYDRATION [None]
  - LARGE INTESTINE PERFORATION [None]
  - MYOPATHY STEROID [None]
  - OCCULT BLOOD POSITIVE [None]
  - ORAL INTAKE REDUCED [None]
  - PULMONARY EMBOLISM [None]
  - PULMONARY OEDEMA [None]
